FAERS Safety Report 10439715 (Version 1)
Quarter: 2014Q3

REPORT INFORMATION
  Report Type: Spontaneous
  Country: US (occurrence: US)
  Receive Date: 20140908
  Receipt Date: 20140908
  Transmission Date: 20150326
  Serious: No
  Sender: FDA-Public Use
  Company Number: US-PFIZER INC-2014245672

PATIENT
  Age: 42 Year
  Sex: Male
  Weight: 81.63 kg

DRUGS (6)
  1. XANAX [Concomitant]
     Active Substance: ALPRAZOLAM
     Indication: ANXIETY
     Dosage: UNK
  2. CITALOPRAM [Concomitant]
     Active Substance: CITALOPRAM HYDROBROMIDE
     Indication: DEPRESSION
     Dosage: UNK
  3. DILANTIN [Suspect]
     Active Substance: PHENYTOIN
     Indication: CONVULSION
     Dosage: 200 MG, 2X/DAY (TWO 100MG CAPSULES AT ONCE)
     Route: 048
     Dates: start: 2009
  4. ATENOLOL. [Concomitant]
     Active Substance: ATENOLOL
     Indication: HYPERTENSION
     Dosage: UNK
  5. OXYCODONE [Concomitant]
     Active Substance: OXYCODONE
     Dosage: 10 MG, 4X/DAY
  6. MORPHINE [Concomitant]
     Active Substance: MORPHINE
     Dosage: 10 MG, 2X/DAY
     Route: 048

REACTIONS (3)
  - Depression [Unknown]
  - Drug ineffective [Unknown]
  - Anxiety [Unknown]
